FAERS Safety Report 19836413 (Version 2)
Quarter: 2021Q4

REPORT INFORMATION
  Report Type: Spontaneous
  Country: US (occurrence: US)
  Receive Date: 20210914
  Receipt Date: 20211214
  Transmission Date: 20220303
  Serious: No
  Sender: FDA-Public Use
  Company Number: US-SK LIFE SCIENCE, INC.-SKPVG-2021-000850

PATIENT

DRUGS (2)
  1. XCOPRI [Suspect]
     Active Substance: CENOBAMATE
     Indication: Epilepsy
     Dosage: 200 MILLIGRAM, QD
     Route: 048
     Dates: start: 20210202
  2. XCOPRI [Suspect]
     Active Substance: CENOBAMATE
     Indication: Seizure

REACTIONS (5)
  - Liver disorder [Unknown]
  - Weight increased [Unknown]
  - Glucose tolerance impaired [Unknown]
  - Seizure [Unknown]
  - Drug ineffective [Unknown]
